FAERS Safety Report 6113183-2 (Version None)
Quarter: 2009Q1

REPORT INFORMATION
  Report Type: 
  Country: None (occurrence: None)
  Receive Date: 20090312
  Receipt Date: 20090227
  Transmission Date: 20090719
  Serious: Yes (Death, Hospitalization, Other)
  Sender: FDA-Public Use
  Company Number: US-PFIZER INC-2008045113

PATIENT
  Sex: Female

DRUGS (12)
  1. DILANTIN [Suspect]
     Indication: CONVULSION
     Dosage: 200 MG, 2X/DAY
     Dates: start: 20071201, end: 20080208
  2. DILANTIN [Suspect]
     Indication: STATUS EPILEPTICUS
  3. PHENYTOIN [Suspect]
     Indication: CONVULSION
     Route: 042
     Dates: start: 20071211
  4. PHENYTOIN [Suspect]
     Indication: STATUS EPILEPTICUS
  5. ACETYLSALICYLIC ACID [Concomitant]
     Dosage: 325 MG, 1X/DAY
  6. CLONIDINE [Concomitant]
     Dosage: 0.2 MG, 3X/DAY
     Route: 048
  7. RANITIDINE [Concomitant]
     Dosage: 300 MG, 1X/DAY
  8. DEMEROL [Concomitant]
     Dosage: 60 MG, 1X/DAY
     Route: 048
  9. HYDRALAZINE [Concomitant]
     Dosage: 50 MG, 3X/DAY
     Route: 048
  10. LANTUS [Concomitant]
  11. HUMULIN R [Concomitant]
  12. ISOSORBIDE [Concomitant]

REACTIONS (12)
  - ACUTE RESPIRATORY FAILURE [None]
  - BLOOD BILIRUBIN INCREASED [None]
  - CLOSTRIDIAL INFECTION [None]
  - COMA [None]
  - DYSPNOEA [None]
  - MALNUTRITION [None]
  - SEPTIC SHOCK [None]
  - STAPHYLOCOCCAL SEPSIS [None]
  - STEVENS-JOHNSON SYNDROME [None]
  - TOXIC EPIDERMAL NECROLYSIS [None]
  - URINARY TRACT INFECTION [None]
  - VENTRICULAR TACHYCARDIA [None]
